FAERS Safety Report 5968361-X (Version None)
Quarter: 2008Q4

REPORT INFORMATION
  Report Type: 
  Country: None (occurrence: None)
  Receive Date: 20081121
  Receipt Date: 20081121
  Transmission Date: 20090506
  Serious: Yes (Other)
  Sender: FDA-Public Use
  Company Number: None

PATIENT
  Sex: Female
  Weight: 68.0396 kg

DRUGS (1)
  1. LEVAQUIN [Suspect]
     Indication: DIVERTICULITIS
     Dosage: PO
     Route: 048
     Dates: start: 20060823, end: 20060907

REACTIONS (3)
  - ARTHRALGIA [None]
  - ARTHRITIS [None]
  - TENDON RUPTURE [None]
